FAERS Safety Report 6236350-6 (Version None)
Quarter: 2009Q2

REPORT INFORMATION
  Report Type: 
  Country: None (occurrence: None)
  Receive Date: 20090619
  Receipt Date: 20090616
  Transmission Date: 20091009
  Serious: Yes (Other)
  Sender: FDA-Public Use
  Company Number: US-JNJFOC-20090604015

PATIENT
  Sex: Female
  Weight: 85.6 kg

DRUGS (23)
  1. GOLIMUMAB [Suspect]
     Route: 058
  2. GOLIMUMAB [Suspect]
     Route: 058
  3. GOLIMUMAB [Suspect]
     Route: 058
  4. GOLIMUMAB [Suspect]
     Route: 058
  5. GOLIMUMAB [Suspect]
     Route: 058
  6. GOLIMUMAB [Suspect]
     Route: 058
  7. GOLIMUMAB [Suspect]
     Indication: RHEUMATOID ARTHRITIS
     Route: 058
  8. GOLIMUMAB [Suspect]
     Route: 042
  9. GOLIMUMAB [Suspect]
     Route: 042
  10. GOLIMUMAB [Suspect]
     Route: 042
  11. GOLIMUMAB [Suspect]
     Route: 042
  12. GOLIMUMAB [Suspect]
     Route: 042
  13. PLACEBO [Suspect]
     Route: 042
  14. PLACEBO [Suspect]
     Route: 042
  15. PLACEBO [Suspect]
     Indication: RHEUMATOID ARTHRITIS
     Route: 042
  16. METHOTREXATE [Suspect]
     Indication: RHEUMATOID ARTHRITIS
     Route: 048
  17. METHOTREXATE [Concomitant]
     Route: 058
  18. METHOTREXATE [Concomitant]
     Route: 048
  19. ENALAPRIL MALEATE [Concomitant]
     Route: 048
  20. FOLIC ACID [Concomitant]
     Route: 048
  21. PREDNISONE TAB [Concomitant]
     Indication: RHEUMATOID ARTHRITIS
     Route: 048
  22. SIMVASTATIN [Concomitant]
     Route: 048
  23. TYLENOL (CAPLET) [Concomitant]
     Route: 048

REACTIONS (1)
  - TONGUE NEOPLASM MALIGNANT STAGE UNSPECIFIED [None]
